FAERS Safety Report 8150846-1 (Version None)
Quarter: 2012Q1

REPORT INFORMATION
  Report Type: 
  Country: None (occurrence: None)
  Receive Date: 20120220
  Receipt Date: 20120206
  Transmission Date: 20120608
  Serious: Yes (Hospitalization, Other)
  Sender: FDA-Public Use
  Company Number: US-ELI_LILLY_AND_COMPANY-US201201003502

PATIENT
  Sex: Female
  Weight: 53.515 kg

DRUGS (18)
  1. FOCALIN                                 /USA/ [Concomitant]
     Indication: ATTENTION DEFICIT/HYPERACTIVITY DISORDER
     Dosage: UNK, UNKNOWN
     Route: 048
  2. BACTRIM DS [Concomitant]
     Indication: URINARY TRACT INFECTION
     Dosage: UNK, OTHER
     Route: 048
  3. OXYCODONE AND ACETAMINOPHEN [Concomitant]
     Indication: PAIN
     Dosage: UNK, BID
     Route: 048
  4. FOCALIN                                 /USA/ [Concomitant]
     Dosage: 10 MG, BID
     Route: 048
  5. TRAZODONE HYDROCHLORIDE [Concomitant]
     Indication: INSOMNIA
     Dosage: 150 MG, EACH EVENING
     Route: 048
  6. REQUIP [Concomitant]
     Indication: RESTLESS LEGS SYNDROME
     Dosage: 1 MG, UNKNOWN
     Route: 048
  7. COGENTIN                                /USA/ [Concomitant]
     Indication: TARDIVE DYSKINESIA
     Dosage: UNK, UNKNOWN
     Route: 048
  8. COGENTIN                                /USA/ [Concomitant]
     Dosage: 1 MG, OTHER
     Route: 048
  9. VITRON-C [Concomitant]
     Indication: ANAEMIA
     Dosage: UNK, QD
     Route: 048
  10. INVEGA [Concomitant]
     Dosage: 3 MG, QD
     Route: 048
  11. ATIVAN [Concomitant]
     Indication: ANXIETY
     Dosage: 2 MG, BID
  12. IBUPROFEN [Concomitant]
     Indication: PAIN
     Dosage: 600 MG, QID
     Route: 048
  13. OMEPRAZOLE [Concomitant]
     Indication: GASTROOESOPHAGEAL REFLUX DISEASE
     Dosage: 20 MG, BID
  14. CLONAZEPAM [Concomitant]
     Dosage: UNK, UNKNOWN
  15. DIPHENHYDRAMINE HCL [Concomitant]
     Indication: INSOMNIA
     Dosage: 50 MG, EACH EVENING
     Route: 048
  16. CYMBALTA [Suspect]
     Indication: DEPRESSION
     Dosage: UNK, UNKNOWN
     Route: 048
     Dates: start: 20050101
  17. FLEXERIL [Concomitant]
     Dosage: UNK, UNKNOWN
  18. SYNTHROID [Concomitant]
     Indication: HYPOTHYROIDISM
     Dosage: 50 UG, QD

REACTIONS (5)
  - CARDIOMYOPATHY [None]
  - BIPOLAR DISORDER [None]
  - NECK PAIN [None]
  - ROAD TRAFFIC ACCIDENT [None]
  - LOSS OF CONSCIOUSNESS [None]
